FAERS Safety Report 19786389 (Version 1)
Quarter: 2021Q3

REPORT INFORMATION
  Report Type: Spontaneous
  Country: US (occurrence: US)
  Receive Date: 20210903
  Receipt Date: 20210903
  Transmission Date: 20211014
  Serious: Yes (Hospitalization)
  Sender: FDA-Public Use
  Company Number: US-IGSA-BIG0015827

PATIENT
  Age: 67 Year
  Sex: Female
  Weight: 72.5 kg

DRUGS (3)
  1. GAMUNEX?C [Suspect]
     Active Substance: HUMAN IMMUNOGLOBULIN G
     Indication: INTENTIONAL PRODUCT USE ISSUE
  2. GAMUNEX?C [Suspect]
     Active Substance: HUMAN IMMUNOGLOBULIN G
     Indication: DERMATOMYOSITIS
     Dosage: 70 GRAM, Q.4WK.
     Route: 042
     Dates: start: 20210424, end: 20210425
  3. SOLU?MEDROL [Concomitant]
     Active Substance: METHYLPREDNISOLONE SODIUM SUCCINATE
     Indication: PRODUCT USED FOR UNKNOWN INDICATION
     Dosage: 40 MILLIGRAM

REACTIONS (4)
  - Rash maculo-papular [Not Recovered/Not Resolved]
  - Pyrexia [Not Recovered/Not Resolved]
  - Dehydration [Recovered/Resolved]
  - Retinal haemorrhage [Recovered/Resolved]

NARRATIVE: CASE EVENT DATE: 20210518
